FAERS Safety Report 7296747-2 (Version None)
Quarter: 2011Q1

REPORT INFORMATION
  Report Type: 
  Country: None (occurrence: None)
  Receive Date: 20110216
  Receipt Date: 20110214
  Transmission Date: 20110831
  Serious: Yes (Hospitalization, Congenital Anomaly)
  Sender: FDA-Public Use
  Company Number: A0881187A

PATIENT
  Sex: Female
  Weight: 3.5 kg

DRUGS (1)
  1. PAXIL [Suspect]
     Indication: ANGER
     Route: 064

REACTIONS (5)
  - DRUG EXPOSURE DURING PREGNANCY [None]
  - CONGENITAL CARDIOVASCULAR ANOMALY [None]
  - CONGENITAL CORONARY ARTERY MALFORMATION [None]
  - ARTERIAL DISORDER [None]
  - MATERNAL DRUGS AFFECTING FOETUS [None]
